FAERS Safety Report 11340732 (Version 3)
Quarter: 2015Q4

REPORT INFORMATION
  Report Type: Spontaneous
  Country: US (occurrence: US)
  Receive Date: 20150805
  Receipt Date: 20151209
  Transmission Date: 20160304
  Serious: Yes (Death, Other)
  Sender: FDA-Public Use
  Company Number: US-009507513-1508USA001301

PATIENT
  Sex: Female
  Weight: 48.98 kg

DRUGS (1)
  1. JANUVIA [Suspect]
     Active Substance: SITAGLIPTIN PHOSPHATE
     Indication: TYPE 2 DIABETES MELLITUS
     Dosage: 50 MG, QD
     Route: 048
     Dates: start: 20120719, end: 20120930

REACTIONS (22)
  - Hypertension [Unknown]
  - Hyperlipidaemia [Unknown]
  - Cerebral arteriosclerosis [Unknown]
  - Dementia [Unknown]
  - Diastolic dysfunction [Unknown]
  - Diverticulum intestinal [Unknown]
  - Arteriosclerosis [Unknown]
  - Acute kidney injury [Unknown]
  - Cervical vertebral fracture [Unknown]
  - Aortic arteriosclerosis [Unknown]
  - Cardiomegaly [Unknown]
  - Pancreatic carcinoma metastatic [Unknown]
  - Death [Fatal]
  - Metastases to lymph nodes [Unknown]
  - Carotid artery occlusion [Unknown]
  - Gravitational oedema [Unknown]
  - Osteosclerosis [Unknown]
  - Umbilical hernia [Unknown]
  - Cerebrovascular disorder [Unknown]
  - Transient ischaemic attack [Unknown]
  - Anxiety disorder [Unknown]
  - Seizure [Unknown]

NARRATIVE: CASE EVENT DATE: 2012
